FAERS Safety Report 9877290 (Version 5)
Quarter: 2014Q3

REPORT INFORMATION
  Report Type: Spontaneous
  Country: US (occurrence: US)
  Receive Date: 20140206
  Receipt Date: 20140905
  Transmission Date: 20150326
  Serious: Yes (Other)
  Sender: FDA-Public Use
  Company Number: PHEH2014US002474

PATIENT
  Sex: Female

DRUGS (1)
  1. GLEEVEC [Suspect]
     Active Substance: IMATINIB MESYLATE
     Indication: CHRONIC MYELOID LEUKAEMIA
     Dosage: DRUG EXPOSURE HAS OCCURRED VIA THE FATHER

REACTIONS (3)
  - Branchial cleft sinus [Unknown]
  - Exposure via father [Unknown]
  - Mass [Unknown]
